FAERS Safety Report 6029826-8 (Version None)
Quarter: 2009Q1

REPORT INFORMATION
  Report Type: 
  Country: None (occurrence: None)
  Receive Date: 20090106
  Receipt Date: 20090106
  Transmission Date: 20090719
  Serious: Yes (Life-Threatening)
  Sender: FDA-Public Use
  Company Number: None

PATIENT
  Age: 41 Year
  Sex: Male
  Weight: 81.6475 kg

DRUGS (1)
  1. CHANTIX [Suspect]
     Indication: SMOKING CESSATION THERAPY
     Dosage: 0.5 MG 1 PILL 1X 12/18/08 7:45 AM TO 12/19/08 11:30AM
     Dates: start: 20081218, end: 20081219

REACTIONS (6)
  - ABNORMAL BEHAVIOUR [None]
  - CRYING [None]
  - HALLUCINATION, AUDITORY [None]
  - THINKING ABNORMAL [None]
  - TRICHOTILLOMANIA [None]
  - VERTIGO [None]
